FAERS Safety Report 21528561 (Version 1)
Quarter: 2022Q4

REPORT INFORMATION
  Report Type: Report from Study
  Country: US (occurrence: US)
  Receive Date: 20221031
  Receipt Date: 20221031
  Transmission Date: 20230113
  Serious: Yes (Hospitalization, Other)
  Sender: FDA-Public Use
  Company Number: US-JNJFOC-20221055406

PATIENT
  Sex: Male

DRUGS (1)
  1. RIVAROXABAN [Suspect]
     Active Substance: RIVAROXABAN
     Indication: Product used for unknown indication
     Route: 048
     Dates: start: 20180201

REACTIONS (2)
  - Cerebrovascular accident [Recovering/Resolving]
  - Treatment noncompliance [Unknown]

NARRATIVE: CASE EVENT DATE: 20220101
